FAERS Safety Report 20770877 (Version 4)
Quarter: 2024Q1

REPORT INFORMATION
  Report Type: Spontaneous
  Country: US (occurrence: US)
  Receive Date: 20220429
  Receipt Date: 20240301
  Transmission Date: 20240409
  Serious: No
  Sender: FDA-Public Use
  Company Number: US-PFIZER INC-2019024540

PATIENT
  Age: 77 Year
  Sex: Female
  Weight: 58.97 kg

DRUGS (3)
  1. PREMARIN [Suspect]
     Active Substance: ESTROGENS, CONJUGATED
     Indication: Vulvovaginal dryness
     Dosage: UNK
     Dates: start: 2010
  2. PREMARIN [Suspect]
     Active Substance: ESTROGENS, CONJUGATED
     Indication: Pelvic floor repair
     Dosage: 1 G, ALTERNATE DAY
     Route: 067
  3. TRIAMCINOLONE ACETONIDE [Concomitant]
     Active Substance: TRIAMCINOLONE ACETONIDE
     Dosage: 1 G (INSERTED VAGINALLY ALTERNATELY WITH THE PREMARIN VAGINAL CREAM)
     Route: 067

REACTIONS (2)
  - Drug ineffective [Unknown]
  - Off label use [Unknown]
